FAERS Safety Report 23826331 (Version 1)
Quarter: 2024Q2

REPORT INFORMATION
  Report Type: Spontaneous
  Country: US (occurrence: None)
  Receive Date: 20240506
  Receipt Date: 20240506
  Transmission Date: 20240716
  Serious: No
  Sender: FDA-Public Use
  Company Number: None

PATIENT
  Age: 76 Year
  Sex: Female

DRUGS (1)
  1. REPATHA [Suspect]
     Active Substance: EVOLOCUMAB
     Indication: Hypercholesterolaemia
     Dosage: OTHER FREQUENCY : EVERY TWO WEEKS;?
     Route: 058
     Dates: start: 20231122, end: 20240301

REACTIONS (2)
  - Flatulence [None]
  - Therapy cessation [None]

NARRATIVE: CASE EVENT DATE: 20240301
